FAERS Safety Report 4780612-6 (Version None)
Quarter: 2005Q3

REPORT INFORMATION
  Report Type: 
  Country: None (occurrence: None)
  Receive Date: 20050926
  Receipt Date: 20050915
  Transmission Date: 20060218
  Serious: Yes (Hospitalization, Other)
  Sender: FDA-Public Use
  Company Number: 2005129907

PATIENT
  Sex: Female

DRUGS (1)
  1. BEXTRA [Suspect]
     Indication: ILL-DEFINED DISORDER
     Dates: end: 20040101

REACTIONS (3)
  - HAEMORRHAGIC STROKE [None]
  - PAIN IN EXTREMITY [None]
  - SHOULDER PAIN [None]
